FAERS Safety Report 22051186 (Version 2)
Quarter: 2023Q1

REPORT INFORMATION
  Report Type: Spontaneous
  Country: BE (occurrence: BE)
  Receive Date: 20230301
  Receipt Date: 20230314
  Transmission Date: 20230417
  Serious: Yes (Hospitalization, Other)
  Sender: FDA-Public Use
  Company Number: BE-009507513-2302BEL005814

PATIENT
  Age: 63 Year
  Sex: Female
  Weight: 106 kg

DRUGS (3)
  1. KEYTRUDA [Suspect]
     Active Substance: PEMBROLIZUMAB
     Indication: Neoadjuvant therapy
     Dosage: 200 MILLIGRAM, Q3W
     Route: 042
     Dates: start: 20220808, end: 20220926
  2. TAXOL [Suspect]
     Active Substance: PACLITAXEL
  3. CARBOPLATIN [Suspect]
     Active Substance: CARBOPLATIN
     Dosage: UNK

REACTIONS (5)
  - Small intestinal perforation [Recovering/Resolving]
  - Large intestine perforation [Unknown]
  - Immune-mediated nephritis [Recovered/Resolved]
  - Immune-mediated thyroiditis [Recovered/Resolved]
  - Platelet disorder [Unknown]

NARRATIVE: CASE EVENT DATE: 20221010
